FAERS Safety Report 6300884-6 (Version None)
Quarter: 2009Q3

REPORT INFORMATION
  Report Type: 
  Country: None (occurrence: None)
  Receive Date: 20090807
  Receipt Date: 20090730
  Transmission Date: 20100115
  Serious: No
  Sender: FDA-Public Use
  Company Number: US-BAYER-200839547NA

PATIENT
  Age: 44 Year
  Sex: Male
  Weight: 81 kg

DRUGS (1)
  1. MAGNEVIST [Suspect]
     Indication: NUCLEAR MAGNETIC RESONANCE IMAGING BRAIN
     Route: 042
     Dates: start: 20081031, end: 20081031

REACTIONS (9)
  - AGITATION [None]
  - ANXIETY [None]
  - CHEST DISCOMFORT [None]
  - DEREALISATION [None]
  - DIZZINESS [None]
  - DYSPNOEA [None]
  - FEELING JITTERY [None]
  - FORMICATION [None]
  - INSOMNIA [None]
